FAERS Safety Report 6576441-3 (Version None)
Quarter: 2010Q1

REPORT INFORMATION
  Report Type: 
  Country: None (occurrence: None)
  Receive Date: 20100210
  Receipt Date: 20100202
  Transmission Date: 20100710
  Serious: Yes (Other)
  Sender: FDA-Public Use
  Company Number: PHHY2009BR47102

PATIENT
  Age: 44 Year
  Sex: Male

DRUGS (1)
  1. CATAFLAM [Suspect]
     Dosage: 50 MG, 3 TAB DAILY
     Route: 048

REACTIONS (4)
  - FURUNCLE [None]
  - PAIN [None]
  - SPEECH DISORDER [None]
  - SWELLING FACE [None]
